FAERS Safety Report 24818307 (Version 2)
Quarter: 2025Q3

REPORT INFORMATION
  Report Type: Report from Study
  Country: US (occurrence: US)
  Receive Date: 20250108
  Receipt Date: 20250803
  Transmission Date: 20251021
  Serious: Yes (Other)
  Sender: ALEXION PHARMACEUTICALS
  Company Number: US-AstraZeneca-CH-00778000A

PATIENT
  Age: 55 Year
  Sex: Female

DRUGS (1)
  1. DAPAGLIFLOZIN [Suspect]
     Active Substance: DAPAGLIFLOZIN
     Indication: Product used for unknown indication
     Route: 065

REACTIONS (5)
  - Product use issue [Unknown]
  - Chronic kidney disease [Unknown]
  - Osteoarthritis [Unknown]
  - Hypertension [Unknown]
  - Weight increased [Unknown]
